FAERS Safety Report 6398975-7 (Version None)
Quarter: 2009Q4

REPORT INFORMATION
  Report Type: 
  Country: None (occurrence: None)
  Receive Date: 20091007
  Receipt Date: 20090924
  Transmission Date: 20100525
  Serious: Yes (Death, Life-Threatening)
  Sender: FDA-Public Use
  Company Number: 2009-03207

PATIENT
  Age: 48 Year
  Sex: Male
  Weight: 71 kg

DRUGS (30)
  1. VELCADE [Suspect]
     Indication: MULTIPLE MYELOMA
     Dosage: 2.4 MG; INTRAVENOUS; 1.8 MG, INTRAVENOUS;
     Route: 042
     Dates: start: 20090123, end: 20090223
  2. VELCADE [Suspect]
     Indication: MULTIPLE MYELOMA
     Dosage: 2.4 MG; INTRAVENOUS; 1.8 MG, INTRAVENOUS;
     Route: 042
     Dates: start: 20090310, end: 20090728
  3. VELCADE [Suspect]
     Indication: MULTIPLE MYELOMA
     Dosage: 2.4 MG; INTRAVENOUS; 1.8 MG, INTRAVENOUS;
     Route: 042
     Dates: start: 20090825, end: 20090825
  4. ALLOPURINOL [Concomitant]
  5. FAMOTIDINE [Concomitant]
  6. AMITRIPTYLINE HCL [Concomitant]
  7. GABAPENTIN [Concomitant]
  8. METHYCOBAL (MECOBALAMIN) [Concomitant]
  9. ALENDRONATE SODIUM [Concomitant]
  10. MAGNESIUM OXIDE (MAGNESIUM OXIDE) [Concomitant]
  11. VALTREX [Concomitant]
  12. SULFAMETHOXAZOLE AND TRIMETHOPRIM [Concomitant]
  13. FLUCONAZOLE [Concomitant]
  14. LOXOPROFEN SODIUM (LOXOPROFEN SODIUM) [Concomitant]
  15. LENDORM [Concomitant]
  16. OXYCONTIN [Concomitant]
  17. THALIDOMIDE [Concomitant]
  18. RED BLOOD CELLS [Concomitant]
  19. DEXAMETHASONE SODIUM PHOSPHATE [Concomitant]
  20. GRAN [Concomitant]
  21. VENOGLOBULIN-I [Concomitant]
  22. CEFTAZIDIME [Concomitant]
  23. ZOSYN [Concomitant]
  24. CISPLATIN [Concomitant]
  25. VINCRISTINE [Concomitant]
  26. PEPLOMYCIN (PEPLOMYCIN) [Concomitant]
  27. OXYGEN (OXYGEN) [Concomitant]
  28. GLYCERYL TRINITRATE (GLYCERYL TRINITRATE) [Concomitant]
  29. LOSARTAN POTASSIUM [Concomitant]
  30. DOPAMINE HCL [Concomitant]

REACTIONS (14)
  - ABNORMAL BEHAVIOUR [None]
  - BRAIN NATRIURETIC PEPTIDE INCREASED [None]
  - CARDIAC FAILURE CONGESTIVE [None]
  - CARDIOMEGALY [None]
  - CONDITION AGGRAVATED [None]
  - DEPRESSED LEVEL OF CONSCIOUSNESS [None]
  - DISEASE PROGRESSION [None]
  - HYPOKINESIA [None]
  - METASTASES TO CENTRAL NERVOUS SYSTEM [None]
  - MULTIPLE MYELOMA [None]
  - NEUROPATHY PERIPHERAL [None]
  - NO THERAPEUTIC RESPONSE [None]
  - PAIN IN EXTREMITY [None]
  - PANCYTOPENIA [None]
